FAERS Safety Report 7422483-5 (Version None)
Quarter: 2011Q2

REPORT INFORMATION
  Report Type: 
  Country: None (occurrence: None)
  Receive Date: 20110419
  Receipt Date: 20110411
  Transmission Date: 20111010
  Serious: No
  Sender: FDA-Public Use
  Company Number: US-BIOGENIDEC-2011BI013914

PATIENT
  Age: 41 Year
  Sex: Female

DRUGS (2)
  1. TYSABRI [Suspect]
     Indication: MULTIPLE SCLEROSIS
     Route: 042
     Dates: start: 20070814
  2. AVONEX [Concomitant]
     Indication: MULTIPLE SCLEROSIS
     Route: 030
     Dates: start: 20021118

REACTIONS (6)
  - FEELING ABNORMAL [None]
  - MOBILITY DECREASED [None]
  - BLINDNESS [None]
  - FATIGUE [None]
  - GENERAL SYMPTOM [None]
  - GAIT DISTURBANCE [None]
